FAERS Safety Report 6882414-3 (Version None)
Quarter: 2010Q3

REPORT INFORMATION
  Report Type: 
  Country: None (occurrence: None)
  Receive Date: 20100727
  Receipt Date: 20100721
  Transmission Date: 20110219
  Serious: Yes (Other)
  Sender: FDA-Public Use
  Company Number: 1000015264

PATIENT
  Age: 15 Year
  Sex: Female

DRUGS (3)
  1. CELEXA [Suspect]
     Dosage: 60 MG (60 MG, 1 IN 1 D),ORAL
     Route: 048
  2. CONCERTA [Concomitant]
  3. YAZ [Concomitant]

REACTIONS (2)
  - HYPERCHLORAEMIA [None]
  - METABOLIC ACIDOSIS [None]
